FAERS Safety Report 9523767 (Version 2)
Quarter: 2013Q3

REPORT INFORMATION
  Report Type: Report from Study
  Country: US (occurrence: US)
  Receive Date: 20130915
  Receipt Date: 20130915
  Transmission Date: 20140515
  Serious: Yes (Hospitalization, Other)
  Sender: FDA-Public Use
  Company Number: PHHO2010US16744

PATIENT
  Age: 40 Year
  Sex: Female
  Weight: 82.54 kg

DRUGS (8)
  1. ICL670A [Suspect]
     Indication: IRON OVERLOAD
     Dosage: 1000 MG, QD
     Route: 048
     Dates: start: 20070117, end: 20120109
  2. ICL670A [Suspect]
     Dosage: 1000 MG, QD
     Route: 048
     Dates: start: 20120110, end: 20120426
  3. LEVAQUIN [Suspect]
  4. HYDROXYUREA [Concomitant]
     Indication: PROPHYLAXIS
     Dosage: 500 MG, BID
     Route: 048
     Dates: start: 1997, end: 20120426
  5. FOLIC ACID [Concomitant]
     Indication: ANAEMIA
     Dosage: 1 MG, QD
     Route: 048
     Dates: start: 19970819, end: 20111128
  6. FOLIC ACID [Concomitant]
     Dosage: 2 MG, QD
     Route: 048
     Dates: start: 20111129
  7. METHADONE [Concomitant]
     Indication: PAIN
     Dosage: 60 MG, BID
     Route: 048
     Dates: start: 20060705, end: 20111227
  8. SILDENAFIL [Concomitant]
     Indication: PULMONARY HYPERTENSION
     Dosage: 50 MG, QHS
     Route: 048
     Dates: start: 2011

REACTIONS (37)
  - Renal failure acute [Recovered/Resolved]
  - Sickle cell anaemia with crisis [Recovered/Resolved]
  - Haemolysis [Unknown]
  - Splenic infarction [Recovered/Resolved]
  - Anaemia [Recovering/Resolving]
  - Pain in extremity [Unknown]
  - Back pain [Unknown]
  - Arthralgia [Unknown]
  - Condition aggravated [Recovering/Resolving]
  - Cardiomegaly [Recovered/Resolved]
  - Haemosiderosis [Recovered/Resolved]
  - Gastroenteritis [Recovered/Resolved]
  - Abdominal pain [Recovered/Resolved]
  - Diarrhoea [Unknown]
  - Nausea [Unknown]
  - Vomiting [Unknown]
  - Lobar pneumonia [Recovered/Resolved]
  - Hepatic function abnormal [Recovering/Resolving]
  - Bile duct stone [Not Recovered/Not Resolved]
  - Jaundice [Unknown]
  - Hyperbilirubinaemia [Recovering/Resolving]
  - Bile duct obstruction [Unknown]
  - Concomitant disease progression [Not Recovered/Not Resolved]
  - Transaminases increased [Recovering/Resolving]
  - Blood alkaline phosphatase increased [Recovering/Resolving]
  - Klebsiella infection [Recovering/Resolving]
  - Urinary tract infection [Recovering/Resolving]
  - Multi-organ failure [Unknown]
  - Pulmonary hypertension [Unknown]
  - Cardiac failure congestive [Unknown]
  - Bacteraemia [Unknown]
  - Infection [Unknown]
  - Erythema [Unknown]
  - Feeling hot [Unknown]
  - Oedema [Unknown]
  - Viral infection [Unknown]
  - Pyrexia [Unknown]
